FAERS Safety Report 9203928 (Version 1)
Quarter: 2013Q1

REPORT INFORMATION
  Report Type: Spontaneous
  Country: US (occurrence: None)
  Receive Date: 20130329
  Receipt Date: 20130329
  Transmission Date: 20140127
  Serious: Yes (Other)
  Sender: FDA-Public Use
  Company Number: None

PATIENT
  Age: 48 Year
  Sex: Female
  Weight: 70.1 kg

DRUGS (1)
  1. OFIRMEV [Suspect]
     Indication: PROCEDURAL PAIN
     Dosage: EVERY 6 HOURS
     Route: 042
     Dates: start: 20130317, end: 20130317

REACTIONS (4)
  - Rash [None]
  - Urticaria [None]
  - Hypotension [None]
  - Somnolence [None]
